FAERS Safety Report 9764278 (Version 2)
Quarter: 2013Q4

REPORT INFORMATION
  Report Type: Spontaneous
  Country: JP (occurrence: JP)
  Receive Date: 20131217
  Receipt Date: 20131217
  Transmission Date: 20140711
  Serious: Yes (Life-Threatening)
  Sender: FDA-Public Use
  Company Number: JP-009507513-1311JPN009558

PATIENT
  Age: 66 Year
  Sex: Female

DRUGS (1)
  1. LIPOVAS TABLETS 5 [Suspect]
     Indication: HYPERLIPIDAEMIA
     Dosage: 5 MG, QD
     Route: 048
     Dates: start: 20101116, end: 20131115

REACTIONS (1)
  - Hyperkalaemia [Recovered/Resolved]
